FAERS Safety Report 10575574 (Version 3)
Quarter: 2014Q4

REPORT INFORMATION
  Report Type: Spontaneous
  Country: US (occurrence: US)
  Receive Date: 20141111
  Receipt Date: 20141118
  Transmission Date: 20150529
  Serious: Yes (Hospitalization)
  Sender: FDA-Public Use
  Company Number: US-UNITED THERAPEUTICS-UNT-2014-010415

PATIENT
  Age: 29 Year
  Sex: Female
  Weight: 115.19 kg

DRUGS (3)
  1. REVATIO [Concomitant]
     Active Substance: SILDENAFIL CITRATE
     Indication: PRODUCT USED FOR UNKNOWN INDICATION
  2. TYVASO [Suspect]
     Active Substance: TREPROSTINIL
     Dosage: UNK
     Dates: start: 20140417
  3. TYVASO [Suspect]
     Active Substance: TREPROSTINIL
     Indication: PULMONARY ARTERIAL HYPERTENSION
     Dosage: 36-54 ?G, QID
     Dates: start: 20140219

REACTIONS (4)
  - Pulmonary arterial hypertension [Unknown]
  - Pulmonary arterial pressure increased [Unknown]
  - Hypertension [Unknown]
  - Therapy cessation [Unknown]

NARRATIVE: CASE EVENT DATE: 2014
